FAERS Safety Report 5372481-0 (Version None)
Quarter: 2007Q2

REPORT INFORMATION
  Report Type: 
  Country: None (occurrence: None)
  Receive Date: 20070620
  Receipt Date: 20070507
  Transmission Date: 20071010
  Serious: No
  Sender: FDA-Public Use
  Company Number: 2007RL000197

PATIENT
  Age: 70 Year
  Sex: Male

DRUGS (11)
  1. OMACOR [Suspect]
     Indication: BLOOD TRIGLYCERIDES INCREASED
     Dosage: 4 MG; QD; PO
     Route: 048
     Dates: start: 20070417
  2. LEVOXYL [Concomitant]
  3. CELEBREX [Concomitant]
  4. AVALIDE [Concomitant]
  5. CYMBALTA [Concomitant]
  6. ASPIRIN [Concomitant]
  7. PLAVIX [Concomitant]
  8. NASONEX [Concomitant]
  9. WELCHOL [Concomitant]
  10. ALLEGRA [Concomitant]
  11. MULTIVITAMIN /00831701 [Concomitant]

REACTIONS (3)
  - ARTHRALGIA [None]
  - CONDITION AGGRAVATED [None]
  - MYALGIA [None]
